FAERS Safety Report 19519702 (Version 1)
Quarter: 2021Q3

REPORT INFORMATION
  Report Type: Report from Study
  Country: US (occurrence: US)
  Receive Date: 20210712
  Receipt Date: 20210712
  Transmission Date: 20211014
  Serious: No
  Sender: FDA-Public Use
  Company Number: NVSC2021US147056

PATIENT
  Age: 69 Year
  Sex: Female

DRUGS (1)
  1. ENTRESTO [Suspect]
     Active Substance: SACUBITRIL\VALSARTAN
     Indication: CARDIAC FAILURE
     Dosage: 97 TO 103 MG
     Route: 048
     Dates: start: 2018

REACTIONS (5)
  - Blood pressure decreased [Not Recovered/Not Resolved]
  - Fall [Unknown]
  - Condition aggravated [Unknown]
  - Overweight [Unknown]
  - Dyspnoea [Unknown]
